FAERS Safety Report 9914065 (Version 2)
Quarter: 2014Q1

REPORT INFORMATION
  Report Type: Spontaneous
  Country: SE (occurrence: SE)
  Receive Date: 20140220
  Receipt Date: 20140220
  Transmission Date: 20141002
  Serious: Yes (Other)
  Sender: FDA-Public Use
  Company Number: SE-ASTRAZENECA-2013SE92343

PATIENT
  Age: 69 Year
  Sex: Female

DRUGS (2)
  1. CRESTOR [Suspect]
     Route: 048
  2. LEVAXIN [Concomitant]
     Indication: THYROID CANCER

REACTIONS (3)
  - Diarrhoea [Unknown]
  - Angioedema [Unknown]
  - Asthenia [Unknown]
